FAERS Safety Report 24367288 (Version 1)
Quarter: 2024Q3

REPORT INFORMATION
  Report Type: Spontaneous
  Country: DE (occurrence: DE)
  Receive Date: 20240926
  Receipt Date: 20240926
  Transmission Date: 20241016
  Serious: Yes (Other)
  Sender: INSUD PHARMA
  Company Number: DE-EXELTIS PHARMACEUTICAL HOLDING, S.L.-2409DE07134

PATIENT
  Sex: Female

DRUGS (1)
  1. DROSPIRENONE [Suspect]
     Active Substance: DROSPIRENONE
     Indication: Contraception
     Dosage: 4 MILLIGRAM, QD
     Route: 065
     Dates: start: 202309

REACTIONS (2)
  - Migraine with aura [Recovering/Resolving]
  - Hemiparesis [Recovering/Resolving]
